FAERS Safety Report 5012976-2 (Version None)
Quarter: 2006Q2

REPORT INFORMATION
  Report Type: 
  Country: None (occurrence: None)
  Receive Date: 20060525
  Receipt Date: 20060503
  Transmission Date: 20061013
  Serious: Yes (Hospitalization, Other)
  Sender: FDA-Public Use
  Company Number: US200605001058

PATIENT
  Age: 80 Year
  Sex: Female

DRUGS (2)
  1. ILETIN [Suspect]
     Indication: DIABETES MELLITUS
     Dates: start: 19860101
  2. HUMAN INSULIN (RDNA ORIGIN) (HUMAN INSULIN (RDNA ORIGIN)) [Concomitant]

REACTIONS (15)
  - ASTHENIA [None]
  - BLISTER [None]
  - BLOOD GLUCOSE INCREASED [None]
  - CONDITION AGGRAVATED [None]
  - DISTURBANCE IN ATTENTION [None]
  - FALL [None]
  - FEELING COLD [None]
  - IMPAIRED DRIVING ABILITY [None]
  - LOSS OF CONSCIOUSNESS [None]
  - MENTAL IMPAIRMENT [None]
  - MYOCARDIAL INFARCTION [None]
  - RHEUMATOID ARTHRITIS [None]
  - THERMAL BURN [None]
  - TREMOR [None]
  - WALKING DISABILITY [None]
